FAERS Safety Report 5761291-8 (Version None)
Quarter: 2008Q2

REPORT INFORMATION
  Report Type: 
  Country: None (occurrence: None)
  Receive Date: 20080606
  Receipt Date: 20080528
  Transmission Date: 20081010
  Serious: Yes (Hospitalization)
  Sender: FDA-Public Use
  Company Number: JP-MERCK-0805USA06146

PATIENT
  Age: 38 Year
  Sex: Female

DRUGS (5)
  1. ZOCOR [Suspect]
     Route: 048
     Dates: end: 20060901
  2. MICARDIS [Concomitant]
     Route: 048
     Dates: end: 20060901
  3. METFORMIN HYDROCHLORIDE [Concomitant]
     Route: 048
     Dates: end: 20060901
  4. AMARYL [Concomitant]
     Route: 058
     Dates: end: 20060901
  5. INSULIN [Concomitant]
     Route: 065
     Dates: start: 20060801

REACTIONS (4)
  - DRUG EXPOSURE DURING PREGNANCY [None]
  - GLYCOSYLATED HAEMOGLOBIN INCREASED [None]
  - HYPERLIPIDAEMIA [None]
  - PREGNANCY INDUCED HYPERTENSION [None]
